FAERS Safety Report 15530275 (Version 7)
Quarter: 2024Q4

REPORT INFORMATION
  Report Type: Spontaneous
  Country: FR (occurrence: FR)
  Receive Date: 20181018
  Receipt Date: 20241209
  Transmission Date: 20250115
  Serious: Yes (Life-Threatening)
  Sender: MYLAN
  Company Number: FR-NOVPHSZ-PHHY2017FR113822

PATIENT
  Age: 68 Year
  Sex: Female

DRUGS (6)
  1. PROPRANOLOL [Interacting]
     Active Substance: PROPRANOLOL HYDROCHLORIDE
     Indication: Hepatic cirrhosis
     Dosage: 40 MILLIGRAM, BID
     Route: 065
  2. PROPRANOLOL [Interacting]
     Active Substance: PROPRANOLOL HYDROCHLORIDE
     Dosage: UNK
     Route: 065
  3. METHYLPREDNISOLONE [Interacting]
     Active Substance: METHYLPREDNISOLONE
     Indication: Premedication
     Dosage: 120 MILLIGRAM
     Route: 042
  4. HYDROXYZINE [Interacting]
     Active Substance: HYDROXYZINE HYDROCHLORIDE
     Indication: Premedication
     Dosage: 50 MILLIGRAM
     Route: 065
  5. RANITIDINE [Interacting]
     Active Substance: RANITIDINE
     Indication: Premedication
     Dosage: 300 MILLIGRAM
     Route: 048
  6. DOXORUBICIN HYDROCHLORIDE [Interacting]
     Active Substance: DOXORUBICIN HYDROCHLORIDE
     Indication: Cutaneous T-cell lymphoma
     Dosage: 0.14 MG, UNK OF PLD/MIN
     Route: 042

REACTIONS (9)
  - Chest discomfort [Unknown]
  - Oxygen saturation decreased [Unknown]
  - Dyspnoea [Unknown]
  - Erythema [Unknown]
  - Drug interaction [Unknown]
  - Hypersensitivity [Unknown]
  - Product use issue [Unknown]
  - Off label use [Unknown]
  - Product use in unapproved indication [Unknown]
